FAERS Safety Report 20523101 (Version 4)
Quarter: 2022Q2

REPORT INFORMATION
  Report Type: Report from Study
  Country: DK (occurrence: DK)
  Receive Date: 20220227
  Receipt Date: 20220418
  Transmission Date: 20220721
  Serious: Yes (Death, Life-Threatening, Hospitalization, Disabling)
  Sender: FDA-Public Use
  Company Number: DK-NOVARTISPH-PHHO2016DK009532

PATIENT
  Age: 4 Year
  Sex: Male
  Weight: 8.39 kg

DRUGS (3)
  1. BRANAPLAM [Suspect]
     Active Substance: BRANAPLAM
     Indication: Spinal muscular atrophy
     Dosage: 12.9 ML
     Route: 048
     Dates: start: 20150111
  2. BRANAPLAM [Suspect]
     Active Substance: BRANAPLAM
     Dosage: 6 MG/M2
     Route: 048
     Dates: start: 20160504, end: 20160723
  3. AUGMENTIN [Suspect]
     Active Substance: AMOXICILLIN\CLAVULANATE POTASSIUM
     Indication: Pneumonia
     Dosage: UNK
     Route: 065
     Dates: start: 20160614, end: 20160620

REACTIONS (14)
  - Circulatory collapse [Fatal]
  - Pneumonia [Recovered/Resolved]
  - Respiratory arrest [Recovered/Resolved]
  - Intestinal ischaemia [Not Recovered/Not Resolved]
  - Ischaemic cerebral infarction [Not Recovered/Not Resolved]
  - Diarrhoea [Recovered/Resolved]
  - Muscular weakness [Recovered/Resolved]
  - Dehydration [Recovered/Resolved]
  - Pneumonia [Recovered/Resolved]
  - Pneumonia [Recovered/Resolved]
  - Pneumococcal sepsis [Recovered/Resolved]
  - Pneumonia [Recovering/Resolving]
  - Pneumonia aspiration [Not Recovered/Not Resolved]
  - Atelectasis [Recovering/Resolving]

NARRATIVE: CASE EVENT DATE: 20160620
